FAERS Safety Report 6955584-6 (Version None)
Quarter: 2010Q3

REPORT INFORMATION
  Report Type: 
  Country: None (occurrence: None)
  Receive Date: 20100830
  Receipt Date: 20100819
  Transmission Date: 20110219
  Serious: Yes (Other)
  Sender: FDA-Public Use
  Company Number: US-ASTRAZENECA-2009UW07989

PATIENT
  Age: 79 Year
  Sex: Female

DRUGS (7)
  1. ARIMIDEX [Suspect]
     Route: 048
     Dates: start: 20060101
  2. ARIMIDEX [Suspect]
     Dosage: GENERIC
     Route: 048
     Dates: start: 20100101
  3. DIOVAN [Concomitant]
  4. LASIX [Concomitant]
  5. ASPIRIN [Concomitant]
  6. CITALOPRAM [Concomitant]
  7. VITAMINS [Concomitant]

REACTIONS (4)
  - ARTHROPATHY [None]
  - BONE PAIN [None]
  - DRY MOUTH [None]
  - OROPHARYNGEAL PAIN [None]
